FAERS Safety Report 7956277-9 (Version None)
Quarter: 2011Q4

REPORT INFORMATION
  Report Type: 
  Country: None (occurrence: None)
  Receive Date: 20111109
  Receipt Date: 20111027
  Transmission Date: 20120403
  Serious: Yes (Other)
  Sender: FDA-Public Use
  Company Number: P0568

PATIENT
  Age: 67 Year
  Sex: Male
  Weight: 83.9154 kg

DRUGS (7)
  1. PROVENGE [Suspect]
     Indication: PROSTATE CANCER
     Dosage: INTRAVENOUS ; INTRAVENOUS ; INTRAVENOUS
     Route: 042
     Dates: start: 20100520, end: 20100520
  2. PROVENGE [Suspect]
     Indication: PROSTATE CANCER
     Dosage: INTRAVENOUS ; INTRAVENOUS ; INTRAVENOUS
     Route: 042
     Dates: start: 20100422, end: 20100422
  3. PROVENGE [Suspect]
     Indication: PROSTATE CANCER
     Dosage: INTRAVENOUS ; INTRAVENOUS ; INTRAVENOUS
     Route: 042
     Dates: start: 20100506, end: 20100506
  4. LOVASTATIN (LOVASTATIN) (TABLETS) [Concomitant]
  5. AMBIEN [Concomitant]
  6. VIAGRA [Concomitant]
  7. LOSARTAN (LOSARTAN) (TABLETS) [Concomitant]

REACTIONS (6)
  - VISION BLURRED [None]
  - DIZZINESS [None]
  - CONFUSIONAL STATE [None]
  - CAROTID ARTERY STENOSIS [None]
  - DISORIENTATION [None]
  - CEREBROVASCULAR DISORDER [None]
